FAERS Safety Report 7660125-4 (Version None)
Quarter: 2011Q3

REPORT INFORMATION
  Report Type: 
  Country: None (occurrence: None)
  Receive Date: 20110805
  Receipt Date: 20110729
  Transmission Date: 20111222
  Serious: Yes (Hospitalization, Other)
  Sender: FDA-Public Use
  Company Number: US-BAYER-2010-003958

PATIENT
  Age: 48 Year
  Sex: Female
  Weight: 84.807 kg

DRUGS (17)
  1. GLYCOPYRROLATE [Concomitant]
  2. AMOXICILLIN [Concomitant]
  3. EMEND [Concomitant]
  4. SINGULAIR [Concomitant]
     Indication: MULTIPLE ALLERGIES
     Dosage: 10 MG, UNK
     Route: 048
     Dates: start: 20050101
  5. APREPITANT [Concomitant]
     Indication: NAUSEA
     Dosage: UNK UNK, PRN
  6. PHENERGAN HCL [Concomitant]
     Indication: NAUSEA
     Dosage: UNK UNK, PRN
  7. YASMIN [Suspect]
     Indication: HORMONE LEVEL ABNORMAL
  8. DROSPIRENONE AND ETHINYL ESTRADIOL [Suspect]
     Indication: CONTRACEPTION
     Dosage: UNK
     Dates: start: 20060801, end: 20100101
  9. NEXIUM [Concomitant]
     Indication: GASTRIC DISORDER
     Dosage: UNK UNK, QD
     Route: 048
  10. THYROID TAB [Concomitant]
     Indication: HYPOTHYROIDISM
     Dosage: 90 MG, UNK
     Route: 048
     Dates: start: 20050101
  11. APREPITANT [Concomitant]
     Indication: VOMITING
  12. AZITHROMYCIN [Concomitant]
     Indication: CONTRACEPTION
  13. AZITHROMYCIN [Concomitant]
     Indication: HORMONE LEVEL ABNORMAL
  14. YASMIN [Suspect]
     Indication: CONTRACEPTION
     Dosage: UNK
     Route: 048
     Dates: start: 20060801, end: 20100101
  15. DROSPIRENONE AND ETHINYL ESTRADIOL [Suspect]
     Indication: HORMONE LEVEL ABNORMAL
  16. PROMETHAZINE HYDROXYETHYL CHLORIDE [Concomitant]
  17. NEXIUM [Concomitant]
     Indication: GASTROOESOPHAGEAL REFLUX DISEASE

REACTIONS (7)
  - PROCEDURAL PAIN [None]
  - GALLBLADDER DISORDER [None]
  - BILIARY DYSKINESIA [None]
  - DYSPEPSIA [None]
  - CHOLELITHIASIS [None]
  - PAIN [None]
  - ABDOMINAL PAIN UPPER [None]
